FAERS Safety Report 9189879 (Version 1)
Quarter: 2013Q1

REPORT INFORMATION
  Report Type: Spontaneous
  Country: FR (occurrence: FR)
  Receive Date: 20130326
  Receipt Date: 20130326
  Transmission Date: 20140127
  Serious: Yes (Life-Threatening, Hospitalization, Other)
  Sender: FDA-Public Use
  Company Number: FR-PFIZER INC-2013093085

PATIENT
  Age: 79 Year
  Sex: Female

DRUGS (12)
  1. REVATIO [Suspect]
     Indication: PULMONARY ARTERIAL HYPERTENSION
     Dosage: 5 MG, 3X/DAY
     Route: 048
     Dates: start: 20100303, end: 20100305
  2. REVATIO [Suspect]
     Dosage: 20 MG, 3X/DAY
     Route: 048
     Dates: start: 20100306, end: 20100307
  3. REVATIO [Suspect]
     Dosage: 5 MG, 3X/DAY
     Route: 048
     Dates: start: 20100308, end: 20100308
  4. MONO-TILDIEM [Suspect]
     Indication: PULMONARY ARTERIAL HYPERTENSION
     Dosage: 200 MG, 1X/DAY
     Route: 048
     Dates: start: 20100304, end: 20100308
  5. FLECAINE [Suspect]
     Indication: PULMONARY ARTERIAL HYPERTENSION
     Dosage: 150 MG, 1X/DAY
     Route: 048
     Dates: start: 20100304, end: 20100308
  6. LASILIX [Concomitant]
     Indication: PULMONARY ARTERIAL HYPERTENSION
     Dosage: 40 MG, 1X/DAY
     Route: 048
     Dates: start: 200811
  7. CHRONADALATE [Concomitant]
     Indication: RAYNAUD^S PHENOMENON
     Dosage: UNK
     Route: 048
     Dates: start: 200610, end: 20100304
  8. TRACLEER [Concomitant]
     Indication: PULMONARY ARTERIAL HYPERTENSION
     Dosage: 125 MG, 2X/DAY
     Dates: start: 20070613, end: 20100308
  9. TRACLEER [Concomitant]
     Indication: SYSTEMIC SCLEROSIS
  10. DELURSAN [Concomitant]
     Indication: LIVER DISORDER
     Dosage: 250 MG, 4 TABLETS DAILY
     Route: 048
     Dates: start: 200906, end: 20100308
  11. IMUREL [Concomitant]
     Indication: LIVER DISORDER
     Dosage: 50 MG, 2 TABLETS DAILY
     Route: 048
     Dates: start: 200906, end: 20100308
  12. CORTANCYL [Concomitant]
     Indication: LIVER DISORDER
     Dosage: 5 MG, 1X/DAY
     Dates: start: 200906, end: 20100308

REACTIONS (3)
  - Drug dispensing error [Recovered/Resolved]
  - Renal failure acute [Recovered/Resolved]
  - Generalised oedema [Recovered/Resolved]
